FAERS Safety Report 9131006 (Version 1)
Quarter: 2013Q1

REPORT INFORMATION
  Report Type: Report from Study
  Country: CH (occurrence: CH)
  Receive Date: 20130301
  Receipt Date: 20130301
  Transmission Date: 20140127
  Serious: Yes (Hospitalization)
  Sender: FDA-Public Use
  Company Number: CH-BAYER-2012-110213

PATIENT
  Age: 62 Year
  Sex: Male

DRUGS (2)
  1. SORAFENIB (RAF KINASE INHIBITOR) [Suspect]
     Indication: RECTAL CANCER
     Dosage: DAILY DOSE 400 MG
     Route: 048
     Dates: start: 20120711, end: 20120814
  2. CAPECITABINE [Suspect]
     Indication: RECTAL CANCER
     Dosage: DAILY DOSE 300 MG
     Route: 048
     Dates: start: 20120711, end: 20120814

REACTIONS (2)
  - Gastrointestinal stoma necrosis [Recovered/Resolved]
  - Colectomy [Recovered/Resolved]
